FAERS Safety Report 9715144 (Version 1)
Quarter: 2013Q4

REPORT INFORMATION
  Report Type: Spontaneous
  Country: US (occurrence: US)
  Receive Date: 20131126
  Receipt Date: 20131126
  Transmission Date: 20140711
  Serious: Yes (Hospitalization)
  Sender: FDA-Public Use
  Company Number: US-ENDO PHARMACEUTICALS INC.-HYDR20130019

PATIENT
  Sex: Female

DRUGS (2)
  1. HYDROCORTISONE TABLETS [Suspect]
     Indication: ADRENAL INSUFFICIENCY
     Route: 048
     Dates: start: 201205, end: 201311
  2. HYDROCORTISONE TABLETS [Suspect]
     Dosage: UNK
     Route: 048

REACTIONS (1)
  - Adrenocortical insufficiency acute [Recovered/Resolved]
